FAERS Safety Report 7591951-8 (Version None)
Quarter: 2011Q2

REPORT INFORMATION
  Report Type: 
  Country: None (occurrence: None)
  Receive Date: 20110627
  Receipt Date: 20110623
  Transmission Date: 20111010
  Serious: Yes (Death, Hospitalization)
  Sender: FDA-Public Use
  Company Number: 2011SP029407

PATIENT
  Age: 70 Year
  Sex: Male

DRUGS (1)
  1. NOXAFIL [Suspect]
     Indication: PROPHYLAXIS
     Dosage: 200 MG;TID;

REACTIONS (12)
  - GASTROINTESTINAL DISORDER [None]
  - SEPTIC SHOCK [None]
  - CANDIDIASIS [None]
  - TUMOUR LYSIS SYNDROME [None]
  - RENAL FAILURE [None]
  - GENERAL PHYSICAL HEALTH DETERIORATION [None]
  - ENTEROCOLITIS [None]
  - CONDITION AGGRAVATED [None]
  - DIALYSIS [None]
  - CIRCULATORY COLLAPSE [None]
  - RESPIRATORY FAILURE [None]
  - FEBRILE NEUTROPENIA [None]
